FAERS Safety Report 4924364-5 (Version None)
Quarter: 2006Q1

REPORT INFORMATION
  Report Type: 
  Country: None (occurrence: None)
  Receive Date: 20060227
  Receipt Date: 20060124
  Transmission Date: 20060701
  Serious: No
  Sender: FDA-Public Use
  Company Number: US-GLAXOSMITHKLINE-A0590750A

PATIENT
  Age: 55 Year
  Sex: Female

DRUGS (13)
  1. WELLBUTRIN XL [Suspect]
     Indication: DEPRESSION
     Dosage: 150MG PER DAY
     Route: 048
     Dates: start: 20051201
  2. ATACAND [Concomitant]
  3. ASTELIN [Concomitant]
  4. ZYRTEC [Concomitant]
  5. MOBIC [Concomitant]
  6. PRILOSEC [Concomitant]
  7. SYNTHROID [Concomitant]
  8. PREMARIN [Concomitant]
  9. AYGESTIN [Concomitant]
  10. METHYLTESTOSTERONE [Concomitant]
  11. LITHOBID [Concomitant]
  12. TRILEPTAL [Concomitant]
  13. TRETINOIN CREAM [Concomitant]

REACTIONS (1)
  - INSOMNIA [None]
